FAERS Safety Report 22062711 (Version 1)
Quarter: 2023Q1

REPORT INFORMATION
  Report Type: Spontaneous
  Country: US (occurrence: US)
  Receive Date: 20230306
  Receipt Date: 20230306
  Transmission Date: 20230418
  Serious: Yes (Hospitalization, Other)
  Sender: FDA-Public Use
  Company Number: US-BRISTOL-MYERS SQUIBB COMPANY-2023-030896

PATIENT
  Age: 82 Year
  Sex: Female

DRUGS (4)
  1. REVLIMID [Suspect]
     Active Substance: LENALIDOMIDE
     Indication: Plasma cell myeloma in remission
     Dosage: DAILY ON DAYS 1 THRU 21 OF EACH CYCLE
     Route: 048
     Dates: start: 20210206, end: 202302
  2. ACYCLOVIR [Concomitant]
     Active Substance: ACYCLOVIR
  3. NEURONTIN [MEMANTINE HYDROCHLORIDE] [Concomitant]
  4. DARATUMUMAB [Concomitant]
     Active Substance: DARATUMUMAB
     Dosage: TAKE 1 HOUR BEFORE DARATUMUMAB. TAKE AT SAME TIME DAILY

REACTIONS (1)
  - Pneumonia [Unknown]

NARRATIVE: CASE EVENT DATE: 20230201
